FAERS Safety Report 25271517 (Version 2)
Quarter: 2025Q2

REPORT INFORMATION
  Report Type: Report from Study
  Country: CO (occurrence: CO)
  Receive Date: 20250506
  Receipt Date: 20250529
  Transmission Date: 20250717
  Serious: Yes (Hospitalization)
  Sender: ABBVIE
  Company Number: CO-ABBVIE-6262856

PATIENT
  Age: 69 Year
  Sex: Male

DRUGS (1)
  1. VENCLEXTA [Suspect]
     Active Substance: VENETOCLAX
     Indication: Acute myeloid leukaemia
     Dosage: VENCLEXTA BOTTLE 100 MG
     Route: 048
     Dates: start: 20250407, end: 20250427

REACTIONS (3)
  - Bacterial infection [Recovered/Resolved]
  - Pyrexia [Recovered/Resolved]
  - Haemoglobin decreased [Recovering/Resolving]

NARRATIVE: CASE EVENT DATE: 20250428
